FAERS Safety Report 7359852-8 (Version None)
Quarter: 2011Q1

REPORT INFORMATION
  Report Type: 
  Country: None (occurrence: None)
  Receive Date: 20110317
  Receipt Date: 20110308
  Transmission Date: 20110831
  Serious: Yes (Hospitalization)
  Sender: FDA-Public Use
  Company Number: IE-AMGEN-IRLSP2011012934

PATIENT
  Age: 89 Year
  Sex: Male

DRUGS (6)
  1. CLARITHROMYCIN [Concomitant]
  2. ALLOPURINOL [Concomitant]
  3. LASIX [Concomitant]
  4. ARANESP [Suspect]
     Indication: RENAL FAILURE CHRONIC
     Dosage: 40 A?G, UNK
     Route: 058
  5. GALFER [Concomitant]
  6. CRESTOR [Concomitant]

REACTIONS (2)
  - VOMITING [None]
  - MALAISE [None]
